FAERS Safety Report 25223331 (Version 2)
Quarter: 2025Q2

REPORT INFORMATION
  Report Type: Spontaneous
  Country: JP (occurrence: JP)
  Receive Date: 20250422
  Receipt Date: 20250526
  Transmission Date: 20250717
  Serious: Yes (Other)
  Sender: GLAXOSMITHKLINE
  Company Number: JP-TAKEDA-2025TJP003806

PATIENT

DRUGS (1)
  1. ZEJULA [Suspect]
     Active Substance: NIRAPARIB
     Indication: Ovarian cancer
     Dosage: 200 MG, QD (200 MILLIGRAM, QD)
     Route: 048
     Dates: start: 20250101, end: 20250301

REACTIONS (2)
  - Pelvic venous thrombosis [Unknown]
  - Platelet count decreased [Unknown]
